FAERS Safety Report 7865198 (Version 2)
Quarter: 2016Q1

REPORT INFORMATION
  Report Type: Spontaneous
  Country: GB (occurrence: GB)
  Receive Date: 20110321
  Receipt Date: 20160201
  Transmission Date: 20160526
  Serious: Yes (Hospitalization, Other)
  Sender: FDA-Public Use
  Company Number: GB-BRISTOL-MYERS SQUIBB COMPANY-15609977

PATIENT
  Age: 42 Year
  Sex: Female

DRUGS (3)
  1. ISOPHANE INSULIN HUMAN [Suspect]
     Active Substance: INSULIN HUMAN
     Indication: GESTATIONAL DIABETES
     Dosage: 1 DF, QD
     Route: 058
  2. BETAMETHASONE. [Suspect]
     Active Substance: BETAMETHASONE
     Indication: PRENATAL CARE
     Dosage: 12 MG, QD
     Route: 030
  3. METFORMIN HYDROCHLORIDE. [Suspect]
     Active Substance: METFORMIN HYDROCHLORIDE
     Indication: GESTATIONAL DIABETES
     Dosage: 500 MG, TID
     Route: 065

REACTIONS (9)
  - Diabetic ketoacidosis [Recovering/Resolving]
  - Maternal exposure during pregnancy [Recovered/Resolved]
  - Acanthosis nigricans [Unknown]
  - Live birth [Unknown]
  - Dyspnoea [Unknown]
  - Nausea [Unknown]
  - Vomiting [Unknown]
  - Polyhydramnios [Unknown]
  - Caesarean section [Unknown]
